FAERS Safety Report 19321742 (Version 1)
Quarter: 2021Q2

REPORT INFORMATION
  Report Type: Spontaneous
  Country: FI (occurrence: FI)
  Receive Date: 20210527
  Receipt Date: 20210527
  Transmission Date: 20210717
  Serious: Yes (Death, Other)
  Sender: FDA-Public Use
  Company Number: FI-009507513-2105FIN006029

PATIENT
  Age: 13 Year
  Sex: Male

DRUGS (2)
  1. INTERFERON ALFA?2B [Suspect]
     Active Substance: INTERFERON ALFA-2B
     Dosage: 10 MIU/M2 3 TIMES A WEEK
     Route: 058
     Dates: end: 20061019
  2. INTERFERON ALFA?2B [Suspect]
     Active Substance: INTERFERON ALFA-2B
     Indication: MALIGNANT MELANOMA
     Dosage: 20 MIU/M2 FIVE DAYS A WEEK FOR 4 WEEKS
     Route: 042

REACTIONS (5)
  - Adverse reaction [Unknown]
  - Chest wall tumour [Unknown]
  - Disease recurrence [Unknown]
  - Death [Fatal]
  - Lung neoplasm [Unknown]

NARRATIVE: CASE EVENT DATE: 20061019
